FAERS Safety Report 21439966 (Version 1)
Quarter: 2022Q4

REPORT INFORMATION
  Report Type: Spontaneous
  Country: US (occurrence: None)
  Receive Date: 20221007
  Receipt Date: 20221007
  Transmission Date: 20230113
  Serious: Yes (Disabling, Other)
  Sender: FDA-Public Use
  Company Number: None

PATIENT
  Age: 22 Year
  Sex: Male
  Weight: 61.65 kg

DRUGS (1)
  1. FINASTERIDE [Suspect]
     Active Substance: FINASTERIDE
     Indication: Alopecia
     Dates: start: 20200101, end: 20220722

REACTIONS (25)
  - Irritability [None]
  - Anxiety [None]
  - Disturbance in attention [None]
  - Memory impairment [None]
  - Feeling abnormal [None]
  - Pyrexia [None]
  - Confusional state [None]
  - Irritability [None]
  - Pain [None]
  - Bradyphrenia [None]
  - Blood urine present [None]
  - Libido decreased [None]
  - Erectile dysfunction [None]
  - Penis disorder [None]
  - Myalgia [None]
  - Orgasm abnormal [None]
  - Arthralgia [None]
  - Suicidal ideation [None]
  - Anhedonia [None]
  - Migraine [None]
  - Tinnitus [None]
  - Body temperature increased [None]
  - Chills [None]
  - Fatigue [None]
  - Optic nerve disorder [None]

NARRATIVE: CASE EVENT DATE: 20220722
